FAERS Safety Report 24605615 (Version 1)
Quarter: 2024Q4

REPORT INFORMATION
  Report Type: Spontaneous
  Country: US (occurrence: US)
  Receive Date: 20241111
  Receipt Date: 20241111
  Transmission Date: 20250114
  Serious: No
  Sender: SANOFI AVENTIS
  Company Number: US-SA-2024SA325312

PATIENT
  Sex: Male

DRUGS (11)
  1. DUPIXENT [Suspect]
     Active Substance: DUPILUMAB
     Indication: Dermatitis atopic
     Dosage: 300 MG, QOW
     Route: 058
  2. DOXYCYCLINE [Concomitant]
     Active Substance: DOXYCYCLINE
  3. ACYCLOVIR [Concomitant]
     Active Substance: ACYCLOVIR
  4. LORATADINE [Concomitant]
     Active Substance: LORATADINE
  5. ALLOPURINOL [Concomitant]
     Active Substance: ALLOPURINOL
  6. FISH OIL [Concomitant]
     Active Substance: FISH OIL
  7. GEMFIBROZIL [Concomitant]
     Active Substance: GEMFIBROZIL
  8. NAPROXEN [Concomitant]
     Active Substance: NAPROXEN
  9. PRAVASTATIN [Concomitant]
     Active Substance: PRAVASTATIN
  10. TRAZODONE HCL [Concomitant]
     Active Substance: TRAZODONE HYDROCHLORIDE
  11. TRIAMCINOLONE [Concomitant]
     Active Substance: TRIAMCINOLONE

REACTIONS (1)
  - Rash [Unknown]
